FAERS Safety Report 19624853 (Version 1)
Quarter: 2021Q3

REPORT INFORMATION
  Report Type: Spontaneous
  Country: CA (occurrence: CA)
  Receive Date: 20210729
  Receipt Date: 20210729
  Transmission Date: 20211014
  Serious: Yes (Hospitalization, Other)
  Sender: FDA-Public Use
  Company Number: CA-TEVA-2021-CA-1935277

PATIENT
  Age: 63 Year
  Sex: Male
  Weight: 84 kg

DRUGS (16)
  1. ONDANSETRON [Concomitant]
     Active Substance: ONDANSETRON
  2. FILGRASTIM [Concomitant]
     Active Substance: FILGRASTIM
  3. METOPROLOL. [Concomitant]
     Active Substance: METOPROLOL
  4. VALACYCLOVIR [Concomitant]
     Active Substance: VALACYCLOVIR HYDROCHLORIDE
  5. DUTASTERIDE. [Concomitant]
     Active Substance: DUTASTERIDE
  6. QUETIAPINE. [Concomitant]
     Active Substance: QUETIAPINE
  7. RANITIDINE. [Concomitant]
     Active Substance: RANITIDINE
  8. METHOTREXATE. [Suspect]
     Active Substance: METHOTREXATE
     Indication: CENTRAL NERVOUS SYSTEM LYMPHOMA
     Route: 037
  9. LEVETIRACETAM. [Concomitant]
     Active Substance: LEVETIRACETAM
  10. PRAVASTATIN SODIUM. [Concomitant]
     Active Substance: PRAVASTATIN SODIUM
  11. POLYETHYLENE GLYCOL [Concomitant]
     Active Substance: POLYETHYLENE GLYCOLS
  12. DEXAMETHASONE. [Concomitant]
     Active Substance: DEXAMETHASONE
  13. EZETIMIBE. [Concomitant]
     Active Substance: EZETIMIBE
  14. LEUCOVORIN. [Concomitant]
     Active Substance: LEUCOVORIN
  15. ASA [Concomitant]
     Active Substance: ASPIRIN
  16. VITAMIN B12 [Concomitant]
     Active Substance: CYANOCOBALAMIN

REACTIONS (1)
  - Febrile neutropenia [Recovered/Resolved]
